FAERS Safety Report 16366576 (Version 2)
Quarter: 2019Q2

REPORT INFORMATION
  Report Type: Spontaneous
  Country: US (occurrence: US)
  Receive Date: 20190529
  Receipt Date: 20190621
  Transmission Date: 20190711
  Serious: No
  Sender: FDA-Public Use
  Company Number: US-ASTRAZENECA-2019SE68267

PATIENT
  Age: 22688 Day
  Sex: Female
  Weight: 50.3 kg

DRUGS (2)
  1. SYMBICORT [Suspect]
     Active Substance: BUDESONIDE\FORMOTEROL FUMARATE DIHYDRATE
     Indication: ASTHMA
     Dosage: 160-4.5 MCG, ONE PUFF TWICE A DAY, THEN GOES OFF INHALER
     Route: 055
  2. SYMBICORT [Suspect]
     Active Substance: BUDESONIDE\FORMOTEROL FUMARATE DIHYDRATE
     Indication: ASTHMA
     Dosage: 160-4.5 MCG, TWO PUFFS TWICE A DAY
     Route: 055

REACTIONS (5)
  - Intentional device misuse [Not Recovered/Not Resolved]
  - Device failure [Unknown]
  - Off label use [Not Recovered/Not Resolved]
  - Nasopharyngitis [Recovering/Resolving]
  - Asthma [Unknown]

NARRATIVE: CASE EVENT DATE: 20190429
